FAERS Safety Report 23340680 (Version 3)
Quarter: 2024Q1

REPORT INFORMATION
  Report Type: Report from Study
  Country: CO (occurrence: CO)
  Receive Date: 20231227
  Receipt Date: 20240319
  Transmission Date: 20240410
  Serious: Yes (Hospitalization)
  Sender: FDA-Public Use
  Company Number: CO-JNJFOC-20231252782

PATIENT
  Age: 59 Year
  Sex: Male
  Weight: 74 kg

DRUGS (5)
  1. SIMPONI [Suspect]
     Active Substance: GOLIMUMAB
     Indication: Ankylosing spondylitis
     Dosage: LAST DATE OF MEDICATION APPLICATION: 16/OCT/2023
     Route: 041
     Dates: start: 20220824
  2. ACETAMINOPHEN\HYDROCODONE [Concomitant]
     Active Substance: ACETAMINOPHEN\HYDROCODONE
  3. PREGABALIN [Concomitant]
     Active Substance: PREGABALIN
  4. TEMODAL [Concomitant]
     Active Substance: TEMOZOLOMIDE
     Route: 065
  5. TEMODAL [Concomitant]
     Active Substance: TEMOZOLOMIDE
     Route: 065

REACTIONS (4)
  - Brain neoplasm [Not Recovered/Not Resolved]
  - Syncope [Not Recovered/Not Resolved]
  - Oxygen saturation decreased [Not Recovered/Not Resolved]
  - Off label use [Unknown]

NARRATIVE: CASE EVENT DATE: 20231201
